FAERS Safety Report 5177113-2 (Version None)
Quarter: 2006Q4

REPORT INFORMATION
  Report Type: 
  Country: None (occurrence: None)
  Receive Date: 20061207
  Receipt Date: 20061128
  Transmission Date: 20070319
  Serious: Yes (Hospitalization)
  Sender: FDA-Public Use
  Company Number: 2006147071

PATIENT
  Age: 33 Year
  Sex: Female

DRUGS (1)
  1. CLINDAMYCIN HCL [Suspect]
     Indication: TOOTH DISORDER
     Dates: start: 20060101, end: 20061124

REACTIONS (4)
  - DYSPHONIA [None]
  - OEDEMA PERIPHERAL [None]
  - RASH GENERALISED [None]
  - SWOLLEN TONGUE [None]
